FAERS Safety Report 16453635 (Version 1)
Quarter: 2019Q2

REPORT INFORMATION
  Report Type: Spontaneous
  Country: TH (occurrence: TH)
  Receive Date: 20190619
  Receipt Date: 20190619
  Transmission Date: 20190711
  Serious: Yes (Other)
  Sender: FDA-Public Use
  Company Number: PHHY2019TH137926

PATIENT
  Age: 25 Year
  Sex: Female

DRUGS (4)
  1. OCTREOTIDE LAR [Suspect]
     Active Substance: OCTREOTIDE
     Indication: PANCREATIC NEUROENDOCRINE TUMOUR METASTATIC
     Dosage: 30 MG, UNK
     Route: 065
  2. LUTETIUM (177LU) DOTATATE [Suspect]
     Active Substance: LUTETIUM OXODOTREOTIDE LU-177
     Indication: PANCREATIC NEUROENDOCRINE TUMOUR METASTATIC
     Dosage: 200 MCI, CYCLIC
     Route: 065
     Dates: start: 20190108
  3. LUTETIUM (177LU) DOTATATE [Suspect]
     Active Substance: LUTETIUM OXODOTREOTIDE LU-177
     Dosage: 200 MCI, UNK
     Route: 065
     Dates: start: 20190307
  4. LUTETIUM (177LU) DOTATATE [Suspect]
     Active Substance: LUTETIUM OXODOTREOTIDE LU-177
     Dosage: 200 MCI, UNK
     Route: 065
     Dates: start: 20190501

REACTIONS (2)
  - Cholangitis [Unknown]
  - Pyrexia [Unknown]
